FAERS Safety Report 5348142-0 (Version None)
Quarter: 2007Q2

REPORT INFORMATION
  Report Type: 
  Country: None (occurrence: None)
  Receive Date: 20070606
  Receipt Date: 20070530
  Transmission Date: 20071010
  Serious: Yes (Hospitalization)
  Sender: FDA-Public Use
  Company Number: JP-BOEHRINGER INGELHEIM PHARMACEUTICALS, INC.-2007-BP-07409NB

PATIENT
  Age: 70 Year
  Sex: Female

DRUGS (4)
  1. BI-SIFROL TABLETS [Suspect]
     Indication: PARKINSON'S DISEASE
     Route: 048
  2. CABASER [Concomitant]
     Indication: PARKINSON'S DISEASE
     Route: 048
  3. NEODOPASTON [Concomitant]
     Indication: PARKINSON'S DISEASE
     Route: 048
  4. SYMMETREL [Concomitant]
     Indication: PARKINSON'S DISEASE
     Route: 048

REACTIONS (3)
  - FALL [None]
  - FOOT FRACTURE [None]
  - SUDDEN ONSET OF SLEEP [None]
